FAERS Safety Report 7526134-0 (Version None)
Quarter: 2011Q2

REPORT INFORMATION
  Report Type: 
  Country: None (occurrence: None)
  Receive Date: 20110606
  Receipt Date: 20110526
  Transmission Date: 20111010
  Serious: Yes (Other)
  Sender: FDA-Public Use
  Company Number: US-ASTRAZENECA-2011SE32743

PATIENT

DRUGS (2)
  1. VANDETANIB [Suspect]
     Indication: GLIOBLASTOMA
     Route: 048
     Dates: end: 20110518
  2. CARBOPLATIN [Suspect]
     Indication: GLIOBLASTOMA
     Route: 042

REACTIONS (2)
  - CONVULSION [None]
  - MUSCULAR WEAKNESS [None]
